FAERS Safety Report 15994772 (Version 1)
Quarter: 2019Q1

REPORT INFORMATION
  Report Type: Spontaneous
  Country: US (occurrence: US)
  Receive Date: 20190221
  Receipt Date: 20190221
  Transmission Date: 20190418
  Serious: Yes (Death, Life-Threatening, Hospitalization)
  Sender: FDA-Public Use
  Company Number: None

PATIENT
  Age: 78 Year
  Sex: Female
  Weight: 66 kg

DRUGS (1)
  1. SEVOFLURANE LIQUID FOR INHALATION [Suspect]
     Active Substance: SEVOFLURANE
     Indication: GENERAL ANAESTHESIA
     Dosage: ?          OTHER FREQUENCY:TITRATED 0.5-1.6%;?
     Route: 055
     Dates: start: 20180828, end: 20180828

REACTIONS (7)
  - Post procedural complication [None]
  - Packed red blood cell transfusion [None]
  - Transfusion [None]
  - Pulmonary alveolar haemorrhage [None]
  - Pneumothorax [None]
  - Platelet transfusion [None]
  - Shock haemorrhagic [None]

NARRATIVE: CASE EVENT DATE: 20180828
